FAERS Safety Report 9912907 (Version 1)
Quarter: 2014Q1

REPORT INFORMATION
  Report Type: Spontaneous
  Country: GB (occurrence: None)
  Receive Date: 20140212
  Receipt Date: 20140212
  Transmission Date: 20141002
  Serious: Yes (Life-Threatening, Hospitalization, Other)
  Sender: FDA-Public Use
  Company Number: AUR-APL-2014-01470

PATIENT
  Age: 31 Year
  Sex: Female

DRUGS (11)
  1. MIRTAZAPINE (MIRTAZAPINE) [Suspect]
     Indication: PRODUCT USED FOR UNKNOWN INDICATION
     Dosage: 30 MG, 1 IN 1 D
     Route: 048
  2. CYCLIZINE [Concomitant]
  3. FENTANYL [Concomitant]
  4. FERROUS FUMARATE [Concomitant]
  5. FLUCONAZOLE [Concomitant]
  6. LANSOPRAZOLE [Concomitant]
  7. NORETHISTERONE [Concomitant]
  8. NYSTATIN [Concomitant]
  9. ORAMORPH [Concomitant]
  10. PARACETAMOL [Concomitant]
  11. PREDNISOLONE [Concomitant]

REACTIONS (2)
  - Crohn^s disease [None]
  - Pancytopenia [None]
